FAERS Safety Report 17941563 (Version 2)
Quarter: 2020Q4

REPORT INFORMATION
  Report Type: Spontaneous
  Country: AU (occurrence: AU)
  Receive Date: 20200624
  Receipt Date: 20201025
  Transmission Date: 20210113
  Serious: Yes (Other)
  Sender: FDA-Public Use
  Company Number: NVSC2020AU175469

PATIENT
  Sex: Male

DRUGS (3)
  1. IMATINIB. [Suspect]
     Active Substance: IMATINIB MESYLATE
     Indication: CHRONIC MYELOID LEUKAEMIA
     Dosage: UNK
     Route: 065
     Dates: start: 20160315, end: 20190204
  2. DASATINIB. [Suspect]
     Active Substance: DASATINIB
     Indication: CHRONIC MYELOID LEUKAEMIA
     Dosage: UNK
     Route: 065
     Dates: start: 20190201, end: 20200409
  3. DASATINIB. [Suspect]
     Active Substance: DASATINIB
     Dosage: UNK
     Route: 065
     Dates: start: 20190215, end: 20200615

REACTIONS (3)
  - Angiopathy [Unknown]
  - Drug intolerance [Unknown]
  - Pleural effusion [Unknown]
